FAERS Safety Report 16740871 (Version 1)
Quarter: 2019Q3

REPORT INFORMATION
  Report Type: Spontaneous
  Country: US (occurrence: US)
  Receive Date: 20190826
  Receipt Date: 20190826
  Transmission Date: 20191005
  Serious: No
  Sender: FDA-Public Use
  Company Number: US-AMGEN-USASP2019131411

PATIENT
  Age: 77 Year
  Sex: Male
  Weight: 63.5 kg

DRUGS (4)
  1. PROLIA [Suspect]
     Active Substance: DENOSUMAB
     Indication: OSTEOPOROSIS
     Dosage: 60 MILLIGRAM, Q6MO
     Route: 065
  2. VITAMIN D3 [Suspect]
     Active Substance: CHOLECALCIFEROL
     Indication: SUPPLEMENTATION THERAPY
     Dosage: 500MCG/2000 IU ONCE A DAY BY MOUTH
     Route: 048
     Dates: start: 201908
  3. CENTRUM SILVER MEN 50+ [Suspect]
     Active Substance: MINERALS\VITAMINS
     Indication: SUPPLEMENTATION THERAPY
     Dosage: 1 TABLET A DAY BY MOUTH IN THE MORNING
     Route: 048
  4. CALTRATE [Suspect]
     Active Substance: CALCIUM CARBONATE
     Indication: SUPPLEMENTATION THERAPY
     Dosage: 1 TABLET IN THE MORNING AND ONE AT DINNERTIME
     Route: 065
     Dates: start: 201802

REACTIONS (1)
  - Fracture [Unknown]

NARRATIVE: CASE EVENT DATE: 201802
